FAERS Safety Report 8229814-7 (Version None)
Quarter: 2012Q1

REPORT INFORMATION
  Report Type: 
  Country: None (occurrence: None)
  Receive Date: 20120322
  Receipt Date: 20120309
  Transmission Date: 20120608
  Serious: Yes (Other)
  Sender: FDA-Public Use
  Company Number: JP-MYLANLABS-2012S1005613

PATIENT
  Age: 29 Year
  Sex: Female

DRUGS (2)
  1. PAROXETINE HCL [Suspect]
     Dosage: 30 MG/DAY
     Route: 065
  2. PAROXETINE HCL [Suspect]
     Indication: DEPRESSIVE SYMPTOM
     Dosage: 10 MG/DAY
     Route: 065

REACTIONS (1)
  - HYPEREOSINOPHILIC SYNDROME [None]
